FAERS Safety Report 5032633-6 (Version None)
Quarter: 2006Q2

REPORT INFORMATION
  Report Type: 
  Country: None (occurrence: None)
  Receive Date: 20060620
  Receipt Date: 20060620
  Transmission Date: 20061013
  Serious: Yes (Death, Hospitalization, Disabling)
  Sender: FDA-Public Use
  Company Number: None

PATIENT
  Sex: Male
  Weight: 72.5755 kg

DRUGS (2)
  1. BENADRYL [Suspect]
     Indication: LACRIMATION INCREASED
     Dosage: 2 TABLETS DAILY
     Dates: start: 20050504
  2. BENADRYL [Suspect]
     Indication: RHINORRHOEA
     Dosage: 2 TABLETS DAILY
     Dates: start: 20050504

REACTIONS (8)
  - ANHEDONIA [None]
  - ANOREXIA [None]
  - CHOKING [None]
  - DEHYDRATION [None]
  - DEPRESSION [None]
  - DYSPHAGIA [None]
  - DYSURIA [None]
  - THROAT TIGHTNESS [None]
